FAERS Safety Report 5725981-5 (Version None)
Quarter: 2008Q2

REPORT INFORMATION
  Report Type: 
  Country: None (occurrence: None)
  Receive Date: 20080502
  Receipt Date: 20080428
  Transmission Date: 20081010
  Serious: Yes (Hospitalization, Other)
  Sender: FDA-Public Use
  Company Number: FR-BRISTOL-MYERS SQUIBB COMPANY-14169635

PATIENT
  Age: 92 Year
  Sex: Male

DRUGS (4)
  1. COUMADIN [Suspect]
     Indication: PULMONARY EMBOLISM
     Dates: start: 20080206, end: 20080207
  2. CALCIPARINE [Suspect]
     Indication: PULMONARY EMBOLISM
     Dosage: 4-FEB EVENING0.4ML 5TH MORNING0.4,EVENING0.8 6TH=.8+.7 7TH=.7+.6 8TH=.5+.5 9TH=.5 10TH=.5
     Dates: start: 20080204, end: 20080210
  3. INNOHEP [Suspect]
     Indication: PULMONARY EMBOLISM
     Dosage: ALSO TREATED ON 20-FEB-08
     Dates: start: 20080219
  4. ATORVASTATIN CALCIUM [Suspect]
     Dates: start: 20080208

REACTIONS (5)
  - DEHYDRATION [None]
  - HAEMATOMA [None]
  - OVERDOSE [None]
  - PULMONARY EMBOLISM [None]
  - RENAL FAILURE ACUTE [None]
